FAERS Safety Report 20291624 (Version 1)
Quarter: 2022Q1

REPORT INFORMATION
  Report Type: Report from Study
  Country: GB (occurrence: GB)
  Receive Date: 20220104
  Receipt Date: 20220104
  Transmission Date: 20220423
  Serious: Yes (Death, Other)
  Sender: FDA-Public Use
  Company Number: GB-JNJFOC-20211265643

PATIENT

DRUGS (1)
  1. STELARA [Suspect]
     Active Substance: USTEKINUMAB
     Indication: Crohn^s disease
     Dosage: AT 8 WEEKS , THEREAFTER MAINTENANCE DOSE, SUBCUTANEOUSLY, AT EITHER EVERY 12 OR EVERY 8 WEEKS.
     Route: 058

REACTIONS (10)
  - Malignant melanoma [Fatal]
  - Neoplasm malignant [Unknown]
  - Infection [Unknown]
  - Sepsis [Unknown]
  - Abscess [Unknown]
  - Abdominal sepsis [Unknown]
  - Premature rupture of membranes [Unknown]
  - Adverse event [Unknown]
  - Exposure during pregnancy [Unknown]
  - Drug ineffective [Unknown]
